FAERS Safety Report 6714700-1 (Version None)
Quarter: 2010Q2

REPORT INFORMATION
  Report Type: 
  Country: None (occurrence: None)
  Receive Date: 20100507
  Receipt Date: 20100427
  Transmission Date: 20101027
  Serious: No
  Sender: FDA-Public Use
  Company Number: US-BIOGENIDEC-2010BI014478

PATIENT
  Age: 33 Year
  Sex: Female

DRUGS (1)
  1. TYSABRI [Suspect]
     Indication: MULTIPLE SCLEROSIS
     Route: 042
     Dates: start: 20090507

REACTIONS (9)
  - BRONCHITIS [None]
  - CYSTITIS [None]
  - DECREASED IMMUNE RESPONSIVENESS [None]
  - EAR INFECTION [None]
  - INCONTINENCE [None]
  - INFECTION [None]
  - INFLUENZA [None]
  - NASOPHARYNGITIS [None]
  - TYMPANIC MEMBRANE PERFORATION [None]
